FAERS Safety Report 6003732-7 (Version None)
Quarter: 2008Q4

REPORT INFORMATION
  Report Type: 
  Country: None (occurrence: None)
  Receive Date: 20081216
  Receipt Date: 20080926
  Transmission Date: 20090506
  Serious: Yes (Other)
  Sender: FDA-Public Use
  Company Number: US-AMGEN-US310016

PATIENT
  Sex: Female

DRUGS (3)
  1. ARANESP [Suspect]
     Indication: ANAEMIA OF MALIGNANT DISEASE
     Route: 065
     Dates: start: 20080501, end: 20080916
  2. CARBOPLATIN [Concomitant]
     Route: 065
  3. TAXOL [Concomitant]
     Route: 065

REACTIONS (2)
  - NEOPLASM PROGRESSION [None]
  - THERAPEUTIC RESPONSE DECREASED [None]
